FAERS Safety Report 5388776-0 (Version None)
Quarter: 2007Q3

REPORT INFORMATION
  Report Type: 
  Country: None (occurrence: None)
  Receive Date: 20070712
  Receipt Date: 20070706
  Transmission Date: 20080115
  Serious: Yes (Other)
  Sender: FDA-Public Use
  Company Number: 163-20785-07051002

PATIENT
  Age: 79 Year
  Sex: Male

DRUGS (10)
  1. THALOMID [Suspect]
     Indication: MULTIPLE MYELOMA
     Dosage: 100 MG, QD, ORAL
     Route: 048
     Dates: start: 20061106, end: 20070501
  2. COZAAR [Concomitant]
  3. LIPITOR [Concomitant]
  4. NEXIUM [Concomitant]
  5. COLACE (DOCUSATE SODIUM) [Concomitant]
  6. B COMPLEX ELX [Concomitant]
  7. MAGNESIUM (MAGNESIUM) [Concomitant]
  8. COUMADIN [Concomitant]
  9. SELENIUM (SELENIUM) [Concomitant]
  10. SAW PALMETTO (SERENOA REPENS) [Concomitant]

REACTIONS (7)
  - BLOOD UREA INCREASED [None]
  - HAEMATOCRIT DECREASED [None]
  - HAEMOGLOBIN DECREASED [None]
  - LIMB INJURY [None]
  - NO THERAPEUTIC RESPONSE [None]
  - PLATELET COUNT DECREASED [None]
  - RED BLOOD CELL COUNT DECREASED [None]
